FAERS Safety Report 17515167 (Version 1)
Quarter: 2020Q1

REPORT INFORMATION
  Report Type: Spontaneous
  Country: FR (occurrence: FR)
  Receive Date: 20200309
  Receipt Date: 20200309
  Transmission Date: 20200409
  Serious: Yes (Hospitalization)
  Sender: FDA-Public Use
  Company Number: FR-SUN PHARMACEUTICAL INDUSTRIES LTD-2020RR-239406

PATIENT
  Age: 94 Year
  Sex: Female
  Weight: 69 kg

DRUGS (6)
  1. CROMABAK 20 MG/ML, COLLYRE EN SOLUTION [Concomitant]
     Indication: PRODUCT USED FOR UNKNOWN INDICATION
     Dosage: 3 GTT, DAILY
     Route: 047
  2. ISOPHANE INSULIN [Concomitant]
     Active Substance: INSULIN NOS
     Indication: PRODUCT USED FOR UNKNOWN INDICATION
     Dosage: 6 INTERNATIONAL UNIT, DAILY
     Route: 058
  3. TRAMADOL. [Suspect]
     Active Substance: TRAMADOL
     Indication: PRODUCT USED FOR UNKNOWN INDICATION
     Dosage: 3 DOSAGE FORM, DAILY
     Route: 048
     Dates: start: 201907, end: 20190827
  4. PREVISCAN 20 MG, COMPRIME SECABLE [Concomitant]
     Active Substance: FLUINDIONE
     Indication: PRODUCT USED FOR UNKNOWN INDICATION
     Dosage: 0.5 DOSAGE FORM, BID
     Route: 048
  5. LEXOMIL ROCHE COMPRIME BAGUETTE, COMPRIME QUADRISECABLE [Suspect]
     Active Substance: BROMAZEPAM
     Indication: AGITATION
     Dosage: 0.75 DOSAGE FORM, DAILY
     Route: 048
     Dates: start: 20190813, end: 20190827
  6. DACUDOSES, SOLUTION POUR LAVAGE OPHTALMIQUE EN RECIPIENT UNIDOSE [Concomitant]
     Indication: PRODUCT USED FOR UNKNOWN INDICATION
     Dosage: 3 DOSAGE FORM, DAILY
     Route: 047

REACTIONS (4)
  - Condition aggravated [Recovered/Resolved]
  - Agitation [Recovered/Resolved]
  - Coma [Recovered/Resolved]
  - Hallucination [Recovered/Resolved]

NARRATIVE: CASE EVENT DATE: 20190827
